FAERS Safety Report 8945295 (Version 2)
Quarter: 2013Q1

REPORT INFORMATION
  Report Type: Spontaneous
  Country: BE (occurrence: BE)
  Receive Date: 20121205
  Receipt Date: 20130222
  Transmission Date: 20140127
  Serious: Yes (Other)
  Sender: FDA-Public Use
  Company Number: BE-UCBSA-072166

PATIENT
  Sex: Male

DRUGS (2)
  1. VIMPAT [Suspect]
     Indication: POST-TRAUMATIC EPILEPSY
     Route: 048
     Dates: start: 201103
  2. KEPPRA [Concomitant]
     Indication: POST-TRAUMATIC EPILEPSY
     Route: 048
     Dates: start: 2009

REACTIONS (1)
  - Pancreatitis [Recovered/Resolved]
